FAERS Safety Report 10253162 (Version 1)
Quarter: 2014Q2

REPORT INFORMATION
  Report Type: Spontaneous
  Country: JP (occurrence: JP)
  Receive Date: 20140623
  Receipt Date: 20140623
  Transmission Date: 20141212
  Serious: Yes (Hospitalization)
  Sender: FDA-Public Use
  Company Number: JP-GLAXOSMITHKLINE-B1006085A

PATIENT
  Sex: Male

DRUGS (2)
  1. SAMTIREL [Suspect]
     Indication: ANTIFUNGAL PROPHYLAXIS
     Route: 048
     Dates: start: 20140530, end: 20140613
  2. UNKNOWN DRUG [Concomitant]

REACTIONS (1)
  - Liver disorder [Not Recovered/Not Resolved]
